FAERS Safety Report 16574471 (Version 1)
Quarter: 2019Q3

REPORT INFORMATION
  Report Type: Report from Study
  Country: US (occurrence: US)
  Receive Date: 20190715
  Receipt Date: 20190715
  Transmission Date: 20191004
  Serious: Yes (Death)
  Sender: FDA-Public Use
  Company Number: US-BAUSCH-BL-2019-019914

PATIENT
  Age: 76 Year
  Sex: Male

DRUGS (1)
  1. XIFAXAN [Suspect]
     Active Substance: RIFAXIMIN
     Indication: LIVER DISORDER
     Dosage: 04/JUN/2019 OR 05/JUN/2019 (EXACT START DATE OF XIFAXAN WAS UNKNOWN)
     Route: 048
     Dates: start: 201906, end: 20190625

REACTIONS (2)
  - Dysphagia [Unknown]
  - Death [Fatal]

NARRATIVE: CASE EVENT DATE: 201906
